FAERS Safety Report 10064162 (Version 1)
Quarter: 2014Q2

REPORT INFORMATION
  Report Type: Spontaneous
  Country: US (occurrence: None)
  Receive Date: 20140407
  Receipt Date: 20140407
  Transmission Date: 20141212
  Serious: Yes (Other)
  Sender: FDA-Public Use
  Company Number: None

PATIENT
  Age: 35 Year
  Sex: Female

DRUGS (1)
  1. TUBERSOL [Suspect]
     Dosage: INTRADERMAL
     Dates: start: 20140107

REACTIONS (5)
  - Skin plaque [None]
  - Rash papular [None]
  - Pain [None]
  - Headache [None]
  - Headache [None]
